FAERS Safety Report 5068333-6 (Version None)
Quarter: 2006Q3

REPORT INFORMATION
  Report Type: 
  Country: None (occurrence: None)
  Receive Date: 20060802
  Receipt Date: 20050805
  Transmission Date: 20061208
  Serious: Yes (Other)
  Sender: FDA-Public Use
  Company Number: US-BRISTOL-MYERS SQUIBB COMPANY-13065016

PATIENT
  Age: 75 Year
  Sex: Female
  Weight: 41 kg

DRUGS (5)
  1. COUMADIN [Suspect]
     Dates: start: 20050401
  2. ANGIOMAX [Suspect]
     Indication: PERCUTANEOUS CORONARY INTERVENTION
     Dosage: 0.75 MG/KG INTRAVENOUS BOLUS FOLLOWED BY INFUSION OF 1.75 MG/KG/HR
     Route: 042
     Dates: start: 20050401, end: 20050401
  3. REFLUDAN [Suspect]
  4. LEXAPRO [Concomitant]
  5. XANAX [Concomitant]

REACTIONS (1)
  - INTERNATIONAL NORMALISED RATIO INCREASED [None]
